FAERS Safety Report 7498534-9 (Version None)
Quarter: 2011Q2

REPORT INFORMATION
  Report Type: 
  Country: None (occurrence: None)
  Receive Date: 20110516
  Receipt Date: 20110502
  Transmission Date: 20111010
  Serious: Yes (Hospitalization, Disabling)
  Sender: FDA-Public Use
  Company Number: FR-2011-1024

PATIENT
  Age: 17 Year
  Sex: Female

DRUGS (4)
  1. MITOGUZONE [Suspect]
     Indication: HODGKIN'S DISEASE
  2. ETOPOSIDE [Suspect]
     Indication: HODGKIN'S DISEASE
  3. NAVELBINE [Suspect]
     Indication: HODGKIN'S DISEASE
  4. IFOSFAMIDE [Suspect]
     Indication: HODGKIN'S DISEASE

REACTIONS (27)
  - OEDEMA PERIPHERAL [None]
  - MUCOSAL INFLAMMATION [None]
  - PANNICULITIS [None]
  - TACHYCARDIA [None]
  - HYPOALBUMINAEMIA [None]
  - HYPOTHERMIA [None]
  - PARAESTHESIA [None]
  - VULVITIS [None]
  - GLOSSITIS [None]
  - INFLAMMATION [None]
  - RASH MACULAR [None]
  - BLISTER [None]
  - MYALGIA [None]
  - TOXICITY TO VARIOUS AGENTS [None]
  - PAIN IN EXTREMITY [None]
  - RASH ERYTHEMATOUS [None]
  - PROTEINURIA [None]
  - WEIGHT INCREASED [None]
  - ASTHENIA [None]
  - HYPOTENSION [None]
  - GLOSSODYNIA [None]
  - EPIDERMAL NECROSIS [None]
  - DECREASED ACTIVITY [None]
  - LIVEDO RETICULARIS [None]
  - HYPONATRAEMIA [None]
  - CAPILLARY LEAK SYNDROME [None]
  - HYPERAESTHESIA [None]
